FAERS Safety Report 5380525-5 (Version None)
Quarter: 2007Q3

REPORT INFORMATION
  Report Type: 
  Country: None (occurrence: None)
  Receive Date: 20070703
  Receipt Date: 20070618
  Transmission Date: 20080115
  Serious: Yes (Life-Threatening, Other)
  Sender: FDA-Public Use
  Company Number: S07-UKI-02767-01

PATIENT
  Age: 48 Year
  Sex: Female
  Weight: 55 kg

DRUGS (2)
  1. CITALOPRAM HYDROBROMIDE [Suspect]
     Dosage: 20 MG QD PO
     Route: 048
  2. EPIPEN [Suspect]
     Dates: start: 20070601

REACTIONS (3)
  - ANAPHYLACTOID REACTION [None]
  - ARTHROPOD STING [None]
  - DRUG INEFFECTIVE [None]
